FAERS Safety Report 20752884 (Version 1)
Quarter: 2022Q2

REPORT INFORMATION
  Report Type: Spontaneous
  Country: US (occurrence: None)
  Receive Date: 20220426
  Receipt Date: 20220426
  Transmission Date: 20220720
  Serious: No
  Sender: FDA-Public Use
  Company Number: US-ROCHE-2917442

PATIENT
  Sex: Female

DRUGS (17)
  1. ESBRIET [Suspect]
     Active Substance: PIRFENIDONE
     Indication: Idiopathic pulmonary fibrosis
     Dosage: TAKE 1 TABLET 3 TIMES DAILY X1 WEEK,  2 TABS 3 TIMES DAILY X1 WEEK, 3 TABS 3 TIMES DAILY
     Route: 048
  2. MYCOPHENOLATE MOFETIL [Concomitant]
     Active Substance: MYCOPHENOLATE MOFETIL
     Route: 065
  3. ATORVASTATIN [Concomitant]
     Active Substance: ATORVASTATIN
  4. BENZONATATE [Concomitant]
     Active Substance: BENZONATATE
  5. BUPROPION HYDROCHLORIDE [Concomitant]
     Active Substance: BUPROPION HYDROCHLORIDE
  6. DEXILANT [Concomitant]
     Active Substance: DEXLANSOPRAZOLE
  7. GABAPENTIN [Concomitant]
     Active Substance: GABAPENTIN
  8. LAMICTAL [Concomitant]
     Active Substance: LAMOTRIGINE
  9. LEVALBUTEROL [Concomitant]
     Active Substance: LEVALBUTEROL
  10. MELOXICAM [Concomitant]
     Active Substance: MELOXICAM
  11. MONTELUKAST [Concomitant]
     Active Substance: MONTELUKAST SODIUM
  12. ACYCLOVIR [Concomitant]
     Active Substance: ACYCLOVIR
  13. PROAIR HFA [Concomitant]
     Active Substance: ALBUTEROL SULFATE
  14. RALOXIFENE [Concomitant]
     Active Substance: RALOXIFENE
  15. ROPINIROLE [Concomitant]
     Active Substance: ROPINIROLE
  16. SULFAMETHOXAZOLE [Concomitant]
     Active Substance: SULFAMETHOXAZOLE
  17. TOPIRAMATE [Concomitant]
     Active Substance: TOPIRAMATE

REACTIONS (2)
  - Dizziness [Recovered/Resolved]
  - Heart rate increased [Recovered/Resolved]
